FAERS Safety Report 22808812 (Version 7)
Quarter: 2024Q1

REPORT INFORMATION
  Report Type: Spontaneous
  Country: US (occurrence: US)
  Receive Date: 20230810
  Receipt Date: 20240214
  Transmission Date: 20240410
  Serious: Yes (Death, Hospitalization, Other)
  Sender: FDA-Public Use
  Company Number: US-PFIZER INC-202300272676

PATIENT
  Age: 79 Year
  Sex: Male
  Weight: 68.027 kg

DRUGS (27)
  1. VYNDAMAX [Suspect]
     Active Substance: TAFAMIDIS
     Indication: Amyloidosis
     Dosage: 20 MG 1ST DAY
     Dates: start: 202204, end: 202204
  2. VYNDAMAX [Suspect]
     Active Substance: TAFAMIDIS
     Indication: Cardiac amyloidosis
     Dosage: 61 MG, DAILY
     Dates: start: 202204, end: 20230801
  3. FUROSEMIDE [Concomitant]
     Active Substance: FUROSEMIDE
     Dosage: 40 MG
     Dates: start: 202204, end: 20230801
  4. FUROSEMIDE [Concomitant]
     Active Substance: FUROSEMIDE
     Dosage: UNK
     Dates: end: 20230805
  5. ELIQUIS [Concomitant]
     Active Substance: APIXABAN
     Dosage: 5 MG
     Dates: start: 202204, end: 20230801
  6. ELIQUIS [Concomitant]
     Active Substance: APIXABAN
     Dosage: UNK
     Dates: start: 202302, end: 20230805
  7. AMIODARONE [Concomitant]
     Active Substance: AMIODARONE
     Dosage: 100 MG
     Dates: start: 202204
  8. AMIODARONE [Concomitant]
     Active Substance: AMIODARONE
     Dosage: UNK
     Dates: start: 202204, end: 20230805
  9. DOXAZOSIN [Concomitant]
     Active Substance: DOXAZOSIN MESYLATE
     Dosage: 4 MG
     Dates: start: 202204, end: 20230801
  10. DOXAZOSIN [Concomitant]
     Active Substance: DOXAZOSIN MESYLATE
     Dosage: UNK
     Dates: end: 20230805
  11. FARXIGA [Concomitant]
     Active Substance: DAPAGLIFLOZIN PROPANEDIOL
     Dosage: 10 MG
     Dates: start: 202204, end: 202207
  12. FARXIGA [Concomitant]
     Active Substance: DAPAGLIFLOZIN PROPANEDIOL
     Dosage: UNK
     Dates: end: 20230801
  13. FARXIGA [Concomitant]
     Active Substance: DAPAGLIFLOZIN PROPANEDIOL
     Dosage: UNK
     Dates: start: 202301, end: 20230805
  14. MIDODRINE [Concomitant]
     Active Substance: MIDODRINE
     Dosage: 10 MG
     Dates: start: 202204, end: 20230801
  15. MIDODRINE [Concomitant]
     Active Substance: MIDODRINE
     Dosage: UNK
     Dates: end: 20230805
  16. LORAZEPAM [Concomitant]
     Active Substance: LORAZEPAM
     Dosage: 5 MG
     Dates: start: 202204, end: 20230801
  17. LORAZEPAM [Concomitant]
     Active Substance: LORAZEPAM
     Dosage: UNK
     Dates: start: 202205, end: 20230805
  18. LASIX [Concomitant]
     Active Substance: FUROSEMIDE
     Dosage: 20 MG
     Dates: start: 202204, end: 20230801
  19. LASIX [Concomitant]
     Active Substance: FUROSEMIDE
     Dosage: UNK
     Dates: start: 202203, end: 20230805
  20. POTASSIUM [Concomitant]
     Active Substance: POTASSIUM
     Dosage: 4 MG
     Dates: start: 202204, end: 20230801
  21. POTASSIUM [Concomitant]
     Active Substance: POTASSIUM
     Dosage: UNK
     Dates: start: 202203, end: 20230805
  22. SIMVASTATIN [Concomitant]
     Active Substance: SIMVASTATIN
     Dosage: 40 MG
     Dates: start: 202204, end: 20230801
  23. SIMVASTATIN [Concomitant]
     Active Substance: SIMVASTATIN
     Dosage: UNK
     Dates: end: 20230805
  24. CHOLECALCIFEROL [Concomitant]
     Active Substance: CHOLECALCIFEROL
     Dosage: UNK
     Dates: start: 202204, end: 20230801
  25. CHOLECALCIFEROL [Concomitant]
     Active Substance: CHOLECALCIFEROL
     Dosage: UNK
     Dates: end: 20230805
  26. ZOCOR [Concomitant]
     Active Substance: SIMVASTATIN
     Dosage: 40 MG
     Dates: start: 202204, end: 20230801
  27. ZOCOR [Concomitant]
     Active Substance: SIMVASTATIN
     Dosage: UNK
     Dates: end: 20230805

REACTIONS (15)
  - Cardiac amyloidosis [Fatal]
  - Disease progression [Fatal]
  - Cardiac failure congestive [Fatal]
  - Dyspnoea [Unknown]
  - Hyperhidrosis [Unknown]
  - Fatigue [Unknown]
  - Tremor [Unknown]
  - Dizziness [Unknown]
  - Blood pressure decreased [Unknown]
  - Fall [Unknown]
  - Pulmonary oedema [Unknown]
  - Face injury [Unknown]
  - COVID-19 [Unknown]
  - General physical health deterioration [Unknown]
  - Wrong strength [Unknown]

NARRATIVE: CASE EVENT DATE: 20220101
